FAERS Safety Report 23883709 (Version 2)
Quarter: 2024Q2

REPORT INFORMATION
  Report Type: Spontaneous
  Country: IT (occurrence: IT)
  Receive Date: 20240522
  Receipt Date: 20240524
  Transmission Date: 20240716
  Serious: Yes (Hospitalization)
  Sender: FDA-Public Use
  Company Number: IT-MYLANLABS-2024M1044995

PATIENT
  Sex: Male

DRUGS (2)
  1. IBUPROFEN [Suspect]
     Active Substance: IBUPROFEN
     Indication: Patent ductus arteriosus
     Dosage: 4 DOSES; BETWEEN DAY OF LIFE 10?13
     Route: 065
  2. INDOMETHACIN [Suspect]
     Active Substance: INDOMETHACIN
     Indication: Patent ductus arteriosus
     Dosage: 3 DOSES; BETWEEN DAY OF LIFE 15?16
     Route: 065

REACTIONS (2)
  - Drug ineffective for unapproved indication [Unknown]
  - Off label use [Unknown]
